FAERS Safety Report 14923968 (Version 1)
Quarter: 2018Q2

REPORT INFORMATION
  Report Type: Spontaneous
  Country: FR (occurrence: FR)
  Receive Date: 20180522
  Receipt Date: 20180522
  Transmission Date: 20180711
  Serious: Yes (Hospitalization, Other)
  Sender: FDA-Public Use
  Company Number: FR-MERCK KGAA-2048230

PATIENT
  Age: 56 Year
  Sex: Male

DRUGS (1)
  1. NOVOTHYROX [Suspect]
     Active Substance: LEVOTHYROXINE SODIUM
     Indication: PRODUCT USED FOR UNKNOWN INDICATION

REACTIONS (19)
  - Blood triglycerides increased [None]
  - Gamma-glutamyltransferase increased [Not Recovered/Not Resolved]
  - Vertigo [None]
  - Impaired driving ability [None]
  - Pain in extremity [None]
  - Headache [None]
  - Arthralgia [None]
  - Pain [None]
  - Aspartate aminotransferase increased [Not Recovered/Not Resolved]
  - Mood altered [None]
  - Diarrhoea [None]
  - Insomnia [None]
  - Nervousness [None]
  - Loss of personal independence in daily activities [None]
  - Neck pain [None]
  - Decreased activity [None]
  - Social avoidant behaviour [None]
  - Fatigue [None]
  - Blood thyroid stimulating hormone decreased [Recovered/Resolved]

NARRATIVE: CASE EVENT DATE: 20170227
